FAERS Safety Report 7555240-X (Version None)
Quarter: 2011Q2

REPORT INFORMATION
  Report Type: 
  Country: None (occurrence: None)
  Receive Date: 20110617
  Receipt Date: 20110606
  Transmission Date: 20111010
  Serious: Yes (Other)
  Sender: FDA-Public Use
  Company Number: PHHY2011AU50246

PATIENT
  Sex: Female

DRUGS (1)
  1. CLOZAPINE [Suspect]
     Dosage: 400 MG, NOCTE

REACTIONS (1)
  - PERITONEAL NEOPLASM [None]
